FAERS Safety Report 9831485 (Version 2)
Quarter: 2014Q1

REPORT INFORMATION
  Report Type: Report from Study
  Country: CH (occurrence: CH)
  Receive Date: 20140121
  Receipt Date: 20140204
  Transmission Date: 20141002
  Serious: Yes (Hospitalization)
  Sender: FDA-Public Use
  Company Number: CH-ROCHE-1336186

PATIENT
  Age: 51 Year
  Sex: Female

DRUGS (5)
  1. BEVACIZUMAB [Suspect]
     Indication: BREAST CANCER
     Dosage: LAST DOSE PRIOR TO SAE WAS ON 15/JAN/2014
     Route: 042
     Dates: start: 20120718
  2. CAPECITABINE [Suspect]
     Indication: BREAST CANCER
     Dosage: LAST DOSE PRIOR TO SAE WAS ON 20/JAN/2014
     Route: 048
     Dates: start: 20130213
  3. ENDOXAN [Suspect]
     Indication: BREAST CANCER
     Dosage: LAST DOSE PRIOR TO SAE WAS ON 20/JAN/2014
     Route: 048
     Dates: start: 20120718
  4. ECOFENAC [Concomitant]
     Route: 048
     Dates: start: 20131023
  5. PANTOZOL (SWITZERLAND) [Concomitant]
     Route: 048
     Dates: start: 20121120

REACTIONS (2)
  - Pyrexia [Recovered/Resolved with Sequelae]
  - Diarrhoea [Recovered/Resolved with Sequelae]
